FAERS Safety Report 16790115 (Version 2)
Quarter: 2020Q2

REPORT INFORMATION
  Report Type: Spontaneous
  Country: US (occurrence: US)
  Receive Date: 20190910
  Receipt Date: 20200408
  Transmission Date: 20200713
  Serious: Yes (Death, Hospitalization, Other)
  Sender: FDA-Public Use
  Company Number: US-SA-2019SA251437

PATIENT
  Age: 72 Year
  Sex: Male

DRUGS (1)
  1. LIBTAYO [Suspect]
     Active Substance: CEMIPLIMAB-RWLC
     Indication: SQUAMOUS CELL CARCINOMA OF SKIN
     Dosage: 3 DOSES PRIOR TO EVENT
     Route: 065
     Dates: start: 2019

REACTIONS (8)
  - Prostatomegaly [Unknown]
  - Hospitalisation [Unknown]
  - Renal cyst [Unknown]
  - Aortic arteriosclerosis [Unknown]
  - Colitis [Unknown]
  - Death [Fatal]
  - Diverticulum intestinal [Unknown]
  - Spinal osteoarthritis [Unknown]

NARRATIVE: CASE EVENT DATE: 2019
